FAERS Safety Report 7055290-6 (Version None)
Quarter: 2010Q4

REPORT INFORMATION
  Report Type: 
  Country: None (occurrence: None)
  Receive Date: 20101021
  Receipt Date: 20101013
  Transmission Date: 20110411
  Serious: No
  Sender: FDA-Public Use
  Company Number: US-JNJFOC-20101004189

PATIENT
  Sex: Female
  Weight: 104.78 kg

DRUGS (10)
  1. FENTANYL CITRATE [Suspect]
     Indication: PAIN IN EXTREMITY
     Dosage: NDC# 0781-7111-55
     Route: 062
  2. FENTANYL CITRATE [Suspect]
     Indication: BACK PAIN
     Dosage: NDC# 0781-7111-55
     Route: 062
  3. TEMAZEPAM [Concomitant]
     Indication: SLEEP DISORDER
     Route: 048
  4. METHOTREXATE [Concomitant]
     Indication: RHEUMATOID ARTHRITIS
     Dosage: 2.5 MG/4 TABLETS/TWICE DAILY
     Route: 048
  5. REMICADE [Concomitant]
     Indication: RHEUMATOID ARTHRITIS
     Dosage: EVERY 4WEEKS
     Route: 042
  6. HYDROCHLOROTHIAZIDE [Concomitant]
     Indication: PRODUCT USED FOR UNKNOWN INDICATION
     Route: 048
  7. AZULFIDINE [Concomitant]
     Indication: RHEUMATOID ARTHRITIS
     Route: 048
  8. ATENOLOL [Concomitant]
     Indication: BLOOD PRESSURE
     Route: 048
  9. GABAPENTIN [Concomitant]
     Indication: FIBROMYALGIA
     Dosage: AS NEEDED UP TO 3 TIMES DAILY
     Route: 065
  10. BUSPIRONE HCL [Concomitant]
     Indication: ANXIETY
     Route: 048

REACTIONS (2)
  - APPLICATION SITE PRURITUS [None]
  - WRONG TECHNIQUE IN DRUG USAGE PROCESS [None]
